FAERS Safety Report 8850865 (Version 1)
Quarter: 2012Q4

REPORT INFORMATION
  Report Type: 
  Country: US (occurrence: US)
  Receive Date: 20121019
  Receipt Date: 20121019
  Transmission Date: 20130627
  Serious: No
  Sender: FDA-Public Use
  Company Number: US-PFIZER INC-2012258374

PATIENT
  Age: 30 Year
  Sex: Female
  Weight: 56.69 kg

DRUGS (2)
  1. ADVIL PM [Suspect]
     Indication: BACK PAIN
     Dosage: two tablets at a time
  2. ADVIL [Concomitant]
     Dosage: UNK

REACTIONS (5)
  - Drug effect delayed [Unknown]
  - Somnolence [Unknown]
  - Feeling cold [Unknown]
  - Dysphagia [Unknown]
  - Chills [Unknown]
